FAERS Safety Report 9781774 (Version 2)
Quarter: 2014Q1

REPORT INFORMATION
  Report Type: Report from Study
  Country: AU (occurrence: AU)
  Receive Date: 20131225
  Receipt Date: 20140317
  Transmission Date: 20141002
  Serious: Yes (Death, Hospitalization)
  Sender: FDA-Public Use
  Company Number: AU-ROCHE-1318929

PATIENT
  Age: 43 Year
  Sex: Female
  Weight: 66.05 kg

DRUGS (7)
  1. VEMURAFENIB [Suspect]
     Indication: MALIGNANT MELANOMA
     Route: 048
     Dates: start: 20130625, end: 20131021
  2. RAMIPRIL [Concomitant]
     Indication: HYPERTENSION
     Route: 048
     Dates: start: 201304
  3. IMPLANON [Concomitant]
     Indication: CONTRACEPTION
     Route: 050
     Dates: start: 20130301
  4. LOPERAMIDE [Concomitant]
     Indication: DIARRHOEA
     Route: 048
     Dates: start: 20130806
  5. TELFAST [Concomitant]
     Indication: PRURITUS
     Route: 048
     Dates: start: 20130804, end: 201310
  6. BETAMETHASONE [Concomitant]
     Route: 061
     Dates: start: 20130806
  7. PLACEBO [Suspect]
     Indication: MALIGNANT MELANOMA
     Route: 048
     Dates: start: 20130625, end: 20131020

REACTIONS (1)
  - Metastases to central nervous system [Fatal]
